FAERS Safety Report 4477789-9 (Version None)
Quarter: 2004Q4

REPORT INFORMATION
  Report Type: 
  Country: None (occurrence: None)
  Receive Date: 20041014
  Receipt Date: 20040930
  Transmission Date: 20050328
  Serious: Yes (Other)
  Sender: FDA-Public Use
  Company Number: 2004235825US

PATIENT
  Age: 53 Year
  Sex: Male
  Weight: 104.3 kg

DRUGS (3)
  1. BEXTRA [Suspect]
     Indication: ARTHRALGIA
     Dosage: 20 MG, BID
     Dates: start: 20040920, end: 20040926
  2. TOPROL-XL [Concomitant]
  3. ACETYLSALICYLIC ACID [Concomitant]

REACTIONS (6)
  - ILL-DEFINED DISORDER [None]
  - PYREXIA [None]
  - RASH ERYTHEMATOUS [None]
  - RASH GENERALISED [None]
  - RASH PRURITIC [None]
  - URTICARIA [None]
